FAERS Safety Report 5157189-9 (Version None)
Quarter: 2006Q4

REPORT INFORMATION
  Report Type: 
  Country: None (occurrence: None)
  Receive Date: 20061127
  Receipt Date: 20061116
  Transmission Date: 20070319
  Serious: Yes (Hospitalization, Other)
  Sender: FDA-Public Use
  Company Number: US-JNJFOC-20061104322

PATIENT
  Sex: Male
  Weight: 142.43 kg

DRUGS (1)
  1. DURAGESIC-100 [Suspect]
     Indication: PAIN
     Dosage: 12.5MCG AND 25MCG PATCH
     Route: 062

REACTIONS (8)
  - APPLICATION SITE BURN [None]
  - APPLICATION SITE ERYTHEMA [None]
  - APPLICATION SITE PAIN [None]
  - BLOOD GLUCOSE FLUCTUATION [None]
  - CASTLEMAN'S DISEASE [None]
  - CONDITION AGGRAVATED [None]
  - NEURALGIA [None]
  - PELVIC MASS [None]
